FAERS Safety Report 24197543 (Version 1)
Quarter: 2024Q3

REPORT INFORMATION
  Report Type: Spontaneous
  Country: US (occurrence: None)
  Receive Date: 20240811
  Receipt Date: 20240811
  Transmission Date: 20241016
  Serious: Yes (Life-Threatening)
  Sender: ASTRAZENECA
  Company Number: 2024A181214

PATIENT
  Sex: Female
  Weight: 92.1 kg

DRUGS (1)
  1. BREZTRI [Suspect]
     Active Substance: BUDESONIDE\FORMOTEROL\GLYCOPYRROLATE
     Indication: Chronic obstructive pulmonary disease
     Route: 055
     Dates: start: 20240301, end: 20240329

REACTIONS (1)
  - Ventricular extrasystoles [Unknown]
